FAERS Safety Report 5197564-X (Version None)
Quarter: 2007Q1

REPORT INFORMATION
  Report Type: 
  Country: None (occurrence: None)
  Receive Date: 20070103
  Receipt Date: 20061222
  Transmission Date: 20070707
  Serious: Yes (Other)
  Sender: FDA-Public Use
  Company Number: CL-PFIZER INC-2006156193

PATIENT
  Sex: Male
  Weight: 43 kg

DRUGS (1)
  1. LATANOPROST [Suspect]
     Dosage: DAILY DOSE:50MCG

REACTIONS (1)
  - ARRHYTHMIA [None]
